FAERS Safety Report 8989128 (Version 1)
Quarter: 2012Q4

REPORT INFORMATION
  Report Type: 
  Country: US (occurrence: US)
  Receive Date: 20121227
  Receipt Date: 20121227
  Transmission Date: 20130627
  Serious: No
  Sender: FDA-Public Use
  Company Number: US-ASTRAZENECA-2012SE93446

PATIENT
  Sex: Female

DRUGS (1)
  1. SYMBICORT PMDI [Suspect]
     Route: 055

REACTIONS (4)
  - Dyspnoea [Unknown]
  - Eye disorder [Unknown]
  - Insomnia [Unknown]
  - Hypertension [Unknown]
